FAERS Safety Report 7483318-8 (Version None)
Quarter: 2011Q2

REPORT INFORMATION
  Report Type: 
  Country: None (occurrence: None)
  Receive Date: 20110517
  Receipt Date: 20110503
  Transmission Date: 20111010
  Serious: Yes (Other)
  Sender: FDA-Public Use
  Company Number: FR-JNJFOC-20110503290

PATIENT
  Sex: Female

DRUGS (2)
  1. TERCIAN [Suspect]
     Indication: PRODUCT USED FOR UNKNOWN INDICATION
     Route: 065
     Dates: start: 20110401
  2. RISPERDAL [Suspect]
     Indication: DELIRIUM
     Route: 048
     Dates: start: 20110401

REACTIONS (3)
  - HYPERPROLACTINAEMIA [None]
  - PITUITARY ENLARGEMENT [None]
  - OFF LABEL USE [None]
